FAERS Safety Report 4582331-8 (Version None)
Quarter: 2005Q1

REPORT INFORMATION
  Report Type: 
  Country: None (occurrence: None)
  Receive Date: 20050215
  Receipt Date: 20050203
  Transmission Date: 20050727
  Serious: Yes (Death)
  Sender: FDA-Public Use
  Company Number: US-JNJFOC-20050201624

PATIENT
  Sex: Female

DRUGS (5)
  1. INFLIXIMAB [Suspect]
     Indication: RHEUMATOID ARTHRITIS
     Route: 042
  2. PLAQUENIL [Concomitant]
  3. FOLIC ACID [Concomitant]
  4. RANITIDINE [Concomitant]
  5. CALCIUM GLUCONATE [Concomitant]

REACTIONS (2)
  - LUNG CANCER METASTATIC [None]
  - METASTASES TO SPINE [None]
